FAERS Safety Report 14272997 (Version 1)
Quarter: 2017Q4

REPORT INFORMATION
  Report Type: Spontaneous
  Country: US (occurrence: US)
  Receive Date: 20171211
  Receipt Date: 20171211
  Transmission Date: 20180321
  Serious: No
  Sender: FDA-Public Use
  Company Number: US-BIOGEN-2017BI00460075

PATIENT
  Sex: Female

DRUGS (1)
  1. TYSABRI [Suspect]
     Active Substance: NATALIZUMAB
     Indication: MULTIPLE SCLEROSIS
     Dosage: INFUSED OVER 1 HOUR
     Route: 042
     Dates: start: 20120802

REACTIONS (8)
  - Fatigue [Not Recovered/Not Resolved]
  - Mental impairment [Unknown]
  - Hypoaesthesia [Unknown]
  - Mobility decreased [Unknown]
  - Hallucination, auditory [Recovered/Resolved]
  - Multiple sclerosis relapse [Recovered/Resolved]
  - Amnesia [Not Recovered/Not Resolved]
  - Hypoacusis [Unknown]
